FAERS Safety Report 20166457 (Version 3)
Quarter: 2022Q1

REPORT INFORMATION
  Report Type: Report from Study
  Country: US (occurrence: US)
  Receive Date: 20211209
  Receipt Date: 20220113
  Transmission Date: 20220423
  Serious: Yes (Other)
  Sender: FDA-Public Use
  Company Number: US-UCBSA-2021046701

PATIENT
  Age: 41 Year
  Sex: Female
  Weight: 82 kg

DRUGS (4)
  1. LACOSAMIDE [Suspect]
     Active Substance: LACOSAMIDE
     Indication: Seizure
     Dosage: 100MG AND 50MG- 1 EACH TWICE DAILY
  2. LACOSAMIDE [Suspect]
     Active Substance: LACOSAMIDE
     Dosage: 100MG ONCE DAILY AND ALSO ON 200MG
  3. BRIVIACT [Suspect]
     Active Substance: BRIVARACETAM
     Indication: Seizure
     Dosage: 150 MILLIGRAM, 2X/DAY (BID)
  4. MIDAZOLAM [Suspect]
     Active Substance: MIDAZOLAM
     Indication: Product used for unknown indication
     Dosage: 5MG AS NEEDED

REACTIONS (3)
  - Seizure [Not Recovered/Not Resolved]
  - Stress [Unknown]
  - Intentional product misuse [Unknown]

NARRATIVE: CASE EVENT DATE: 20210605
